FAERS Safety Report 4795834-8 (Version None)
Quarter: 2005Q4

REPORT INFORMATION
  Report Type: 
  Country: None (occurrence: None)
  Receive Date: 20051012
  Receipt Date: 20050318
  Transmission Date: 20060501
  Serious: Yes (Other)
  Sender: FDA-Public Use
  Company Number: PHBS2005RU04312

PATIENT
  Sex: Female

DRUGS (2)
  1. PANAVIR [Suspect]
  2. FAMVIR [Suspect]
     Indication: HERPES SIMPLEX
     Dosage: 250 MG, TID
     Route: 048

REACTIONS (6)
  - DRUG INTERACTION [None]
  - PYREXIA [None]
  - RASH [None]
  - RASH VESICULAR [None]
  - TOXIC SKIN ERUPTION [None]
  - URTICARIA [None]
